FAERS Safety Report 8190085 (Version 3)
Quarter: 2013Q4

REPORT INFORMATION
  Report Type: Report from Study
  Country: JP (occurrence: JP)
  Receive Date: 20111019
  Receipt Date: 20131129
  Transmission Date: 20140711
  Serious: Yes (Other)
  Sender: FDA-Public Use
  Company Number: JP-AMGEN-JPNSP2011053130

PATIENT
  Age: 41 Year
  Sex: Female
  Weight: 71 kg

DRUGS (6)
  1. ROMIPLOSTIM [Suspect]
     Indication: IMMUNE THROMBOCYTOPENIC PURPURA
     Dosage: 1 MUG, QWK
     Route: 058
     Dates: start: 20110812, end: 20110909
  2. OMEPRAL                            /00661201/ [Concomitant]
     Indication: PROPHYLAXIS
     Route: 048
     Dates: start: 20070713, end: 20110927
  3. INCREMIN                           /00023544/ [Concomitant]
     Indication: IRON DEFICIENCY ANAEMIA
     Route: 048
     Dates: start: 20110519, end: 20110927
  4. MEIACT [Concomitant]
     Dosage: 100 MG, QD
     Route: 048
     Dates: start: 20110825, end: 20110829
  5. MEIACT [Concomitant]
     Dosage: 100 MG, TID
  6. LOXONIN [Concomitant]
     Route: 048
     Dates: start: 20110825, end: 20110829

REACTIONS (1)
  - Autoimmune haemolytic anaemia [Recovered/Resolved]
